FAERS Safety Report 24760581 (Version 1)
Quarter: 2024Q4

REPORT INFORMATION
  Report Type: Spontaneous
  Country: US (occurrence: US)
  Receive Date: 20241220
  Receipt Date: 20241220
  Transmission Date: 20250115
  Serious: No
  Sender: DR REDDYS
  Company Number: US-DRL-USA-SPO/USA/24/0018459

PATIENT
  Age: 73 Year
  Sex: Male

DRUGS (3)
  1. ACCUTANE [Suspect]
     Active Substance: ISOTRETINOIN
     Indication: Acne
     Dosage: ACCUTANE ISOTRETINOIN 20MG CAPSULE
     Route: 065
  2. ACCUTANE [Suspect]
     Active Substance: ISOTRETINOIN
     Dosage: ACCUTANE ISOTRETINOIN 30MG CAPSULE
  3. ACCUTANE [Suspect]
     Active Substance: ISOTRETINOIN
     Dosage: ACCUTANE ISOTRETINOIN 40MG CAPSULE
     Route: 065

REACTIONS (1)
  - Therapy interrupted [Unknown]
